FAERS Safety Report 18144512 (Version 1)
Quarter: 2020Q3

REPORT INFORMATION
  Report Type: Other
  Country: CA (occurrence: CA)
  Receive Date: 20200813
  Receipt Date: 20200813
  Transmission Date: 20201103
  Serious: Yes (Hospitalization)
  Sender: FDA-Public Use
  Company Number: CA-EMCURE PHARMACEUTICALS LTD-2020-EPL-001084

PATIENT
  Age: 87 Year
  Sex: Female

DRUGS (3)
  1. PROLIA [Concomitant]
     Active Substance: DENOSUMAB
     Dosage: UNK
     Route: 058
  2. ZOLEDRONIC ACID [Suspect]
     Active Substance: ZOLEDRONIC ACID
     Indication: HYPERCALCAEMIA
     Dosage: UNK
     Route: 041
  3. PAMIDRONATE DISODIUM FOR INJECTION [Concomitant]
     Active Substance: PAMIDRONATE DISODIUM
     Dosage: UNK

REACTIONS (2)
  - Hypocalcaemia [Not Recovered/Not Resolved]
  - Multiple drug therapy [Not Recovered/Not Resolved]
